FAERS Safety Report 23160287 (Version 1)
Quarter: 2023Q4

REPORT INFORMATION
  Report Type: Spontaneous
  Country: CN (occurrence: CN)
  Receive Date: 20231108
  Receipt Date: 20231108
  Transmission Date: 20240109
  Serious: Yes (Hospitalization)
  Sender: FDA-Public Use
  Company Number: CN-PFIZER INC-PV202300179971

PATIENT
  Age: 5 Year
  Sex: Male
  Weight: 15 kg

DRUGS (4)
  1. CYTARABINE [Suspect]
     Active Substance: CYTARABINE
     Indication: Acute lymphocytic leukaemia
     Dosage: 46.8 MG, 1X/DAY
     Route: 041
     Dates: start: 20231003, end: 20231006
  2. CYTARABINE [Suspect]
     Active Substance: CYTARABINE
     Dosage: 46.8 MG, 1X/DAY
     Route: 041
     Dates: start: 20231010, end: 20231013
  3. PEGASPARGASE [Suspect]
     Active Substance: PEGASPARGASE
     Indication: Acute lymphocytic leukaemia
     Dosage: 1562 IU, 1X/DAY
     Route: 030
     Dates: start: 20231002, end: 20231002
  4. CYCLOPHOSPHAMIDE [Suspect]
     Active Substance: CYCLOPHOSPHAMIDE
     Indication: Acute lymphocytic leukaemia
     Dosage: 625 MG, 1X/DAY
     Route: 041
     Dates: start: 20231001, end: 20231001

REACTIONS (3)
  - Myelosuppression [Recovering/Resolving]
  - Infection [Recovering/Resolving]
  - Dysphonia [Unknown]

NARRATIVE: CASE EVENT DATE: 20231016
